FAERS Safety Report 5023952-8 (Version None)
Quarter: 2006Q2

REPORT INFORMATION
  Report Type: 
  Country: None (occurrence: None)
  Receive Date: 20060607
  Receipt Date: 20060526
  Transmission Date: 20061013
  Serious: Yes (Other)
  Sender: FDA-Public Use
  Company Number: USA-2006-0024322

PATIENT
  Sex: Male

DRUGS (1)
  1. OXYCODONE HCL [Suspect]
     Dosage: SEE TEXT

REACTIONS (13)
  - DRUG DEPENDENCE [None]
  - DRUG WITHDRAWAL CONVULSIONS [None]
  - DRUG WITHDRAWAL SYNDROME [None]
  - DYSARTHRIA [None]
  - EMOTIONAL DISORDER [None]
  - EUPHORIC MOOD [None]
  - FALL [None]
  - GENERAL PHYSICAL HEALTH DETERIORATION [None]
  - IMPRISONMENT [None]
  - OVERDOSE [None]
  - POLYSUBSTANCE ABUSE [None]
  - THORACIC VERTEBRAL FRACTURE [None]
  - VOMITING [None]
